FAERS Safety Report 4683329-1 (Version None)
Quarter: 2005Q2

REPORT INFORMATION
  Report Type: 
  Country: None (occurrence: None)
  Receive Date: 20050602
  Receipt Date: 20050211
  Transmission Date: 20051028
  Serious: No
  Sender: FDA-Public Use
  Company Number: 200510232BWH

PATIENT
  Age: 73 Year
  Sex: Male

DRUGS (8)
  1. LEVITRA [Suspect]
     Indication: ERECTILE DYSFUNCTION
     Dosage: 20 MG, TOTAL DAILY, ORAL
     Route: 048
     Dates: start: 20050110
  2. NEXIUM [Concomitant]
  3. ZETIA [Concomitant]
  4. SIMVASTATIN [Concomitant]
  5. ASCORBIC ACID [Concomitant]
  6. GLUCOSAMINE [Concomitant]
  7. WHITE WILLOW BARK [Concomitant]
  8. STUDY DRUG (PSYLLIUM OR PLACEBO) [Concomitant]

REACTIONS (2)
  - FLUSHING [None]
  - HEADACHE [None]
